FAERS Safety Report 9188499 (Version 2)
Quarter: 2013Q3

REPORT INFORMATION
  Report Type: Spontaneous
  Country: US (occurrence: US)
  Receive Date: 20130325
  Receipt Date: 20130724
  Transmission Date: 20140515
  Serious: Yes (Hospitalization, Other)
  Sender: FDA-Public Use
  Company Number: US-009507513-1303USA009509

PATIENT
  Age: 68 Year
  Sex: Female

DRUGS (5)
  1. LOSARTAN POTASSIUM AND HYDROCHLOROTHIAZIDE TABLETS [Suspect]
     Route: 048
  2. LIPITOR [Concomitant]
  3. UBIDECARENONE [Concomitant]
  4. CENTRUM SILVER [Concomitant]
  5. ASPIRIN [Concomitant]

REACTIONS (3)
  - Loss of consciousness [Unknown]
  - Pneumonia [Unknown]
  - Influenza like illness [Unknown]
